FAERS Safety Report 6838858-9 (Version None)
Quarter: 2010Q3

REPORT INFORMATION
  Report Type: 
  Country: None (occurrence: None)
  Receive Date: 20100713
  Receipt Date: 20070721
  Transmission Date: 20110219
  Serious: No
  Sender: FDA-Public Use
  Company Number: US-PFIZER INC-2007042937

PATIENT
  Sex: Female
  Weight: 61.363 kg

DRUGS (7)
  1. CHANTIX [Suspect]
     Indication: SMOKING CESSATION THERAPY
     Dates: start: 20070515
  2. COPAXONE [Concomitant]
  3. PROVIGIL [Concomitant]
  4. LYRICA [Concomitant]
     Indication: BURNING SENSATION
  5. PRIMIDONE [Concomitant]
     Indication: TREMOR
  6. ORAL CONTRACEPTIVE NOS [Concomitant]
  7. WELLBUTRIN [Concomitant]
     Indication: SMOKING CESSATION THERAPY

REACTIONS (7)
  - ABNORMAL DREAMS [None]
  - BONE PAIN [None]
  - DIARRHOEA [None]
  - HEADACHE [None]
  - MALAISE [None]
  - NAUSEA [None]
  - THIRST [None]
